FAERS Safety Report 7538852-9 (Version None)
Quarter: 2011Q2

REPORT INFORMATION
  Report Type: 
  Country: None (occurrence: None)
  Receive Date: 20110610
  Receipt Date: 20110523
  Transmission Date: 20111010
  Serious: Yes (Other)
  Sender: FDA-Public Use
  Company Number: US-BAYER-2011-013032

PATIENT
  Age: 35 Year
  Sex: Female
  Weight: 84.354 kg

DRUGS (4)
  1. AMBIEN [Concomitant]
     Dosage: 12.5 MG, UNK
     Dates: start: 20081201
  2. YAZ [Suspect]
     Indication: MENSTRUATION IRREGULAR
     Dosage: UNK
     Dates: start: 20081001, end: 20090219
  3. YAZ [Suspect]
     Indication: MENORRHAGIA
  4. DICLOFENAC SODIUM [Concomitant]

REACTIONS (5)
  - PULMONARY EMBOLISM [None]
  - FLANK PAIN [None]
  - CHEST PAIN [None]
  - DYSPNOEA [None]
  - ABDOMINAL PAIN [None]
